FAERS Safety Report 25597447 (Version 2)
Quarter: 2025Q3

REPORT INFORMATION
  Report Type: Spontaneous
  Country: CA (occurrence: CA)
  Receive Date: 20250723
  Receipt Date: 20250805
  Transmission Date: 20251020
  Serious: Yes (Death)
  Sender: PURDUE
  Company Number: CA-NAPPMUNDI-GBR-2024-0114042

PATIENT

DRUGS (1)
  1. HYDROMORPHONE HYDROCHLORIDE [Suspect]
     Active Substance: HYDROMORPHONE HYDROCHLORIDE
     Indication: Product used for unknown indication
     Route: 065

REACTIONS (2)
  - Toxicity to various agents [Fatal]
  - Accidental exposure to product by child [Fatal]
